FAERS Safety Report 5077790-0 (Version None)
Quarter: 2006Q3

REPORT INFORMATION
  Report Type: 
  Country: None (occurrence: None)
  Receive Date: 20060810
  Receipt Date: 20060807
  Transmission Date: 20061208
  Serious: Yes (Hospitalization)
  Sender: FDA-Public Use
  Company Number: AU-MERCK-0608AUS00067

PATIENT
  Age: 70 Year
  Sex: Female
  Weight: 67 kg

DRUGS (6)
  1. VYTORIN [Suspect]
     Indication: METABOLIC DISORDER
     Route: 048
     Dates: start: 20060605
  2. EPROSARTAN MESYLATE AND HYDROCHLOROTHIAZIDE [Concomitant]
     Indication: ESSENTIAL HYPERTENSION
     Route: 065
  3. CLOPIDOGREL BISULFATE [Concomitant]
     Route: 065
  4. IRBESARTAN [Concomitant]
     Indication: ESSENTIAL HYPERTENSION
     Route: 065
  5. THIORIDAZINE HYDROCHLORIDE [Concomitant]
     Indication: SCHIZOPHRENIA
     Route: 065
  6. AMLODIPINE BESYLATE [Concomitant]
     Indication: ESSENTIAL HYPERTENSION
     Route: 065

REACTIONS (3)
  - MYALGIA [None]
  - PAIN [None]
  - RHABDOMYOLYSIS [None]
